FAERS Safety Report 16456895 (Version 1)
Quarter: 2019Q2

REPORT INFORMATION
  Report Type: Spontaneous
  Country: DE (occurrence: DE)
  Receive Date: 20190620
  Receipt Date: 20190620
  Transmission Date: 20190711
  Serious: Yes (Other)
  Sender: FDA-Public Use
  Company Number: DE-BAYER-2019-114416

PATIENT
  Sex: Male

DRUGS (2)
  1. CIPROFLOXACIN. [Suspect]
     Active Substance: CIPROFLOXACIN
     Indication: DEVICE RELATED INFECTION
     Dosage: 500 MG, BID DURING REHABILITATION TREATMENT;
     Dates: start: 2018
  2. CIPROFLOXACIN. [Suspect]
     Active Substance: CIPROFLOXACIN
     Indication: ESCHERICHIA INFECTION
     Dosage: 500 MG, BID DURING REHABILITATION TREATMENT;
     Dates: start: 2018

REACTIONS (4)
  - Cardiomyopathy [None]
  - Impaired work ability [None]
  - Myalgia [None]
  - Muscle spasms [None]

NARRATIVE: CASE EVENT DATE: 201810
